FAERS Safety Report 10690133 (Version 1)
Quarter: 2015Q1

REPORT INFORMATION
  Report Type: Spontaneous
  Country: US (occurrence: None)
  Receive Date: 20150102
  Receipt Date: 20150102
  Transmission Date: 20150720
  Serious: No
  Sender: FDA-Public Use
  Company Number: None

PATIENT
  Age: 49 Year
  Sex: Female

DRUGS (16)
  1. SOVALDI [Suspect]
     Active Substance: SOFOSBUVIR
     Indication: HEPATITIS
     Route: 048
     Dates: start: 20141202
  2. HYDROCODONE/IBUPROFEN [Concomitant]
     Active Substance: HYDROCODONE\IBUPROFEN
  3. VALACYCLOVIR [Concomitant]
     Active Substance: VALACYCLOVIR HYDROCHLORIDE
  4. VICOPROFEN [Concomitant]
     Active Substance: HYDROCODONE BITARTRATE\IBUPROFEN
  5. XANAX [Concomitant]
     Active Substance: ALPRAZOLAM
  6. AMOX-CLAV [Concomitant]
     Active Substance: AMOXICILLIN\CLAVULANATE POTASSIUM
  7. MOVIPREP [Concomitant]
     Active Substance: ASCORBIC ACID\POLYETHYLENE GLYCOL 3350\POTASSIUM CHLORIDE\SODIUM ASCORBATE\SODIUM CHLORIDE\SODIUM SULFATE
  8. VALTREX [Concomitant]
     Active Substance: VALACYCLOVIR HYDROCHLORIDE
  9. ALPRAZOLAM. [Concomitant]
     Active Substance: ALPRAZOLAM
  10. CARISOPRODOL. [Concomitant]
     Active Substance: CARISOPRODOL
  11. OMEPRAZOLE. [Concomitant]
     Active Substance: OMEPRAZOLE
  12. RANITIDINE [Concomitant]
     Active Substance: RANITIDINE\RANITIDINE HYDROCHLORIDE
  13. RIBASPHERE RIBAPAK [Suspect]
     Active Substance: RIBAVIRIN
     Indication: HEPATITIS
     Route: 048
     Dates: start: 20141202
  14. MECLIZINE [Concomitant]
     Active Substance: MECLIZINE\MECLIZINE HYDROCHLORIDE
  15. CEPHALEXIN. [Concomitant]
     Active Substance: CEPHALEXIN
  16. PROMETHAZINE [Concomitant]
     Active Substance: PROMETHAZINE\PROMETHAZINE HYDROCHLORIDE

REACTIONS (14)
  - Balance disorder [None]
  - Insomnia [None]
  - Pain [None]
  - Disorientation [None]
  - Influenza like illness [None]
  - Neck pain [None]
  - Ear pain [None]
  - Headache [None]
  - Myalgia [None]
  - Back pain [None]
  - Anxiety [None]
  - Diarrhoea [None]
  - Blepharospasm [None]
  - Tinnitus [None]

NARRATIVE: CASE EVENT DATE: 201412
